FAERS Safety Report 4558245-6 (Version None)
Quarter: 2005Q1

REPORT INFORMATION
  Report Type: 
  Country: None (occurrence: None)
  Receive Date: 20050121
  Receipt Date: 20041202
  Transmission Date: 20050727
  Serious: Yes (Death, Other)
  Sender: FDA-Public Use
  Company Number: PHBS2004JP16391

PATIENT
  Age: 76 Year
  Sex: Male

DRUGS (6)
  1. TOPOTECIN [Suspect]
     Indication: ILEUS
     Dates: start: 20041001, end: 20041015
  2. FLUOROURACIL [Suspect]
     Indication: ILEUS
     Dates: start: 20041001, end: 20041015
  3. ISOVORIN [Concomitant]
     Dates: start: 20041001, end: 20041015
  4. NEUTROGIN [Concomitant]
     Dates: start: 20041018, end: 20041024
  5. TIENAM [Concomitant]
     Dates: start: 20041116, end: 20041126
  6. SANDOSTATIN [Suspect]
     Indication: ILEUS
     Dosage: UNK, UNK
     Route: 058
     Dates: start: 20041110, end: 20041116

REACTIONS (5)
  - BACTERIAL SEPSIS [None]
  - DYSPNOEA [None]
  - INTERSTITIAL LUNG DISEASE [None]
  - PYREXIA [None]
  - WHITE BLOOD CELL COUNT INCREASED [None]
